FAERS Safety Report 6252205-5 (Version None)
Quarter: 2009Q2

REPORT INFORMATION
  Report Type: 
  Country: None (occurrence: None)
  Receive Date: 20090629
  Receipt Date: 20090615
  Transmission Date: 20091009
  Serious: Yes (Life-Threatening, Hospitalization)
  Sender: FDA-Public Use
  Company Number: TPH-00191

PATIENT
  Age: 42 Year
  Sex: Female

DRUGS (1)
  1. TRIAGYNON [Suspect]
     Indication: ORAL CONTRACEPTION
     Dosage: 1 DF ORAL
     Route: 048
     Dates: start: 19890101, end: 20090131

REACTIONS (1)
  - PULMONARY EMBOLISM [None]
